FAERS Safety Report 6504549-7 (Version None)
Quarter: 2009Q4

REPORT INFORMATION
  Report Type: 
  Country: None (occurrence: None)
  Receive Date: 20091215
  Receipt Date: 20091207
  Transmission Date: 20100525
  Serious: Yes (Death)
  Sender: FDA-Public Use
  Company Number: 2009US004042

PATIENT
  Age: 77 Year
  Sex: Male

DRUGS (9)
  1. PROGRAF [Suspect]
     Indication: RENAL TRANSPLANT
     Dosage: 1 MG, BID, ORAL
     Route: 048
     Dates: end: 20091018
  2. CELLCEPT [Concomitant]
  3. SYNTHROID [Concomitant]
  4. LIPITOR [Concomitant]
  5. COREG [Concomitant]
  6. ZEMPLAR [Concomitant]
  7. NOVOLOG [Concomitant]
  8. ADVAIR DISKUS 100/50 [Concomitant]
  9. SPIRIVA [Concomitant]

REACTIONS (1)
  - RESPIRATORY FAILURE [None]
